FAERS Safety Report 5749072-2 (Version None)
Quarter: 2008Q2

REPORT INFORMATION
  Report Type: 
  Country: None (occurrence: None)
  Receive Date: 20080527
  Receipt Date: 20080522
  Transmission Date: 20081010
  Serious: Yes (Hospitalization)
  Sender: FDA-Public Use
  Company Number: FR-BRISTOL-MYERS SQUIBB COMPANY-14202840

PATIENT
  Age: 68 Year
  Sex: Female

DRUGS (2)
  1. PRAVADUAL TABS [Suspect]
     Dosage: TREATED FOR 5-6 MONTHS.
     Route: 048
  2. HYZAAR [Concomitant]

REACTIONS (1)
  - THROMBOCYTOPENIA [None]
